FAERS Safety Report 7599282-7 (Version None)
Quarter: 2011Q3

REPORT INFORMATION
  Report Type: 
  Country: None (occurrence: None)
  Receive Date: 20110711
  Receipt Date: 20110622
  Transmission Date: 20111222
  Serious: Yes (Hospitalization)
  Sender: FDA-Public Use
  Company Number: CA-BAYER-2011-054087

PATIENT
  Age: 82 Year
  Sex: Male
  Weight: 78 kg

DRUGS (17)
  1. PRAVASTATIN SODIUM [Concomitant]
     Route: 048
  2. CELEBREX [Suspect]
     Dosage: 200 MG, BID
     Route: 048
  3. CELEBREX [Suspect]
     Dosage: UNK
  4. ACETYLSALICYLIC ACID SRT [Suspect]
     Dosage: 81 MG, QD
     Route: 048
  5. AMLODIPINE [Concomitant]
     Route: 065
  6. CEFAZOLIN [Concomitant]
     Route: 042
  7. HYDROMORPHONE HCL [Concomitant]
     Route: 065
  8. ACETYLSALICYLIC ACID SRT [Suspect]
     Dosage: UNK
     Route: 048
  9. PAROXETINE HCL [Concomitant]
     Route: 065
  10. XARELTO [Suspect]
     Dosage: UNK
  11. METFORMIN HCL [Concomitant]
     Route: 065
  12. METOPROLOL TARTRATE [Concomitant]
     Route: 065
  13. VITAMIN B-12 [Concomitant]
     Route: 065
  14. VITAMIN D [Concomitant]
     Route: 048
  15. XARELTO [Suspect]
     Dosage: 10 MG, QD
     Route: 048
  16. TRAZODONE HCL [Concomitant]
     Route: 065
  17. ARICEPT [Concomitant]
     Route: 065

REACTIONS (2)
  - GASTRITIS [None]
  - DUODENAL ULCER [None]
